FAERS Safety Report 4882114-5 (Version None)
Quarter: 2006Q1

REPORT INFORMATION
  Report Type: 
  Country: None (occurrence: None)
  Receive Date: 20060117
  Receipt Date: 20050713
  Transmission Date: 20060701
  Serious: Yes (Hospitalization, Other)
  Sender: FDA-Public Use
  Company Number: US-MERCK-0507USA01818

PATIENT
  Age: 65 Year
  Sex: Female
  Weight: 141 kg

DRUGS (2)
  1. VIOXX [Suspect]
     Indication: PAIN IN EXTREMITY
     Route: 048
     Dates: start: 20010120, end: 20011005
  2. VIOXX [Suspect]
     Indication: BACK PAIN
     Route: 048
     Dates: start: 20010120, end: 20011005

REACTIONS (5)
  - ADVERSE EVENT [None]
  - ASTHMA [None]
  - DYSPNOEA [None]
  - MYOCARDIAL INFARCTION [None]
  - THROMBOSIS [None]
